FAERS Safety Report 7265741-X (Version None)
Quarter: 2011Q1

REPORT INFORMATION
  Report Type: 
  Country: None (occurrence: None)
  Receive Date: 20110131
  Receipt Date: 20110117
  Transmission Date: 20110831
  Serious: Yes (Hospitalization, Other)
  Sender: FDA-Public Use
  Company Number: US-ELI_LILLY_AND_COMPANY-US201005003052

PATIENT
  Sex: Female

DRUGS (3)
  1. FORTEO [Suspect]
     Dosage: UNK, UNKNOWN
  2. FORTEO [Suspect]
     Dosage: 20 UG, DAILY (1/D)
     Dates: end: 20101217
  3. FORTEO [Suspect]
     Indication: OSTEOPOROSIS
     Dosage: UNK, UNKNOWN

REACTIONS (9)
  - LIVER FUNCTION TEST ABNORMAL [None]
  - FATIGUE [None]
  - FEELING ABNORMAL [None]
  - ASTHENIA [None]
  - BLOOD CALCIUM INCREASED [None]
  - ALOPECIA [None]
  - STRESS FRACTURE [None]
  - RIB FRACTURE [None]
  - PAIN IN EXTREMITY [None]
